FAERS Safety Report 22535304 (Version 3)
Quarter: 2024Q4

REPORT INFORMATION
  Report Type: Spontaneous
  Country: CA (occurrence: CA)
  Receive Date: 20230608
  Receipt Date: 20241223
  Transmission Date: 20250115
  Serious: Yes (Other)
  Sender: MYLAN
  Company Number: CA-MYLANLABS-2023M1058038

PATIENT
  Sex: Male

DRUGS (10)
  1. GABAPENTIN [Suspect]
     Active Substance: GABAPENTIN
     Indication: Foetal exposure during pregnancy
     Dosage: 100 MILLIGRAM, QD
     Route: 064
  2. ASPIRIN [Suspect]
     Active Substance: ASPIRIN
     Indication: Foetal exposure during pregnancy
     Dosage: 162 MILLIGRAM, QD
     Route: 064
  3. BETAMETHASONE [Suspect]
     Active Substance: BETAMETHASONE
     Indication: Foetal exposure during pregnancy
     Dosage: UNK
     Route: 064
  4. FUROSEMIDE [Suspect]
     Active Substance: FUROSEMIDE
     Indication: Foetal exposure during pregnancy
     Dosage: 10 MILLIGRAM, BID
     Route: 064
  5. HEPARIN SODIUM [Suspect]
     Active Substance: HEPARIN SODIUM
     Indication: Foetal exposure during pregnancy
     Dosage: UNK, BID(2 EVERY 1 DAYS)
     Route: 064
  6. LABETALOL HYDROCHLORIDE [Suspect]
     Active Substance: LABETALOL HYDROCHLORIDE
     Indication: Foetal exposure during pregnancy
     Dosage: UNK
     Route: 064
  7. METOCLOPRAMIDE [Suspect]
     Active Substance: METOCLOPRAMIDE
     Indication: Foetal exposure during pregnancy
     Dosage: UNK
     Route: 064
  8. MIRTAZAPINE [Suspect]
     Active Substance: MIRTAZAPINE
     Indication: Foetal exposure during pregnancy
     Dosage: 15 MILLIGRAM, QD( 1 EVERY 1 DAYS)
     Route: 064
  9. NIFEDIPINE [Suspect]
     Active Substance: NIFEDIPINE
     Indication: Foetal exposure during pregnancy
     Dosage: 30 MILLIGRAM, QD(1 EVERY 1 DAYS)
     Route: 064
  10. ONDANSETRON [Suspect]
     Active Substance: ONDANSETRON
     Indication: Foetal exposure during pregnancy
     Dosage: UNK
     Route: 064

REACTIONS (5)
  - Low birth weight baby [Unknown]
  - Premature baby [Unknown]
  - Premature delivery [Unknown]
  - Foetal exposure during pregnancy [Unknown]
  - Maternal exposure during pregnancy [Unknown]
